FAERS Safety Report 8254317-3 (Version None)
Quarter: 2012Q2

REPORT INFORMATION
  Report Type: 
  Country: None (occurrence: None)
  Receive Date: 20120402
  Receipt Date: 20120323
  Transmission Date: 20120825
  Serious: No
  Sender: FDA-Public Use
  Company Number: US-AMGEN-USASP2012018933

PATIENT
  Age: 36 Year
  Sex: Female

DRUGS (1)
  1. ENBREL [Suspect]
     Indication: SAPHO SYNDROME
     Dosage: 50 MG, QWK
     Dates: start: 20120101

REACTIONS (1)
  - INJECTION SITE PAIN [None]
